FAERS Safety Report 15673808 (Version 3)
Quarter: 2019Q4

REPORT INFORMATION
  Report Type: Spontaneous
  Country: US (occurrence: US)
  Receive Date: 20181129
  Receipt Date: 20191014
  Transmission Date: 20200122
  Serious: Yes (Hospitalization)
  Sender: FDA-Public Use
  Company Number: US-PFIZER INC-2016143579

PATIENT
  Age: 77 Year
  Sex: Male

DRUGS (30)
  1. LYRICA [Suspect]
     Active Substance: PREGABALIN
     Dosage: 50 MG, 2X/DAY (TAKE 1 CAPSULE BY MOUTH 2 TIMES A DAY, MAX DAILY 100 MG)
     Route: 048
     Dates: start: 20160708
  2. PRADAXA [Concomitant]
     Active Substance: DABIGATRAN ETEXILATE MESYLATE
     Dosage: 150 MG, 2X/DAY (TAKE 1 CAPSULE BY MOUTH 2 TIMES A DAY)
     Route: 048
  3. PROSCAR [Concomitant]
     Active Substance: FINASTERIDE
     Dosage: 5 MG, DAILY (TAKE 1 TABLET)
     Route: 048
  4. THEO-DUR [Concomitant]
     Active Substance: THEOPHYLLINE ANHYDROUS
     Dosage: UNK
  5. LYRICA [Suspect]
     Active Substance: PREGABALIN
     Indication: DIABETIC NEUROPATHY
     Dosage: 50 MG, 2X/DAY (TAKE 1 CAPSULE BY MOUTH 2 TIMES A DAY, MAX DAILY 100 MG)
     Route: 048
     Dates: start: 20160205, end: 2016
  6. LYRICA [Suspect]
     Active Substance: PREGABALIN
     Dosage: 50 MG, 2X/DAY (TAKE 1 CAPSULE BY MOUTH 2 TIMES A DAY, MAX DAILY 100 MG)
     Route: 048
     Dates: start: 20170105, end: 2017
  7. ADVAIR HFA [Concomitant]
     Active Substance: FLUTICASONE PROPIONATE\SALMETEROL XINAFOATE
     Dosage: UNK
  8. METOPROLOL. [Concomitant]
     Active Substance: METOPROLOL
     Dosage: UNK
  9. PROVENTIL HFA [SALBUTAMOL] [Concomitant]
     Indication: WHEEZING
     Dosage: UNK, AS NEEDED (INHALE 1-2 PUFFS INTO THE LUNG EVERY 6 HOURS AS NEEDED)
     Route: 055
  10. XOPENEX [Concomitant]
     Active Substance: LEVALBUTEROL HYDROCHLORIDE
     Dosage: 0.63 MG, 4X/DAY (TAKE 0.63 MG BY NEBULIZATION EVERY 6 HOURS)
     Route: 045
  11. LYRICA [Suspect]
     Active Substance: PREGABALIN
     Dosage: 50 MG, 2X/DAY (TAKE 1 CAPSULE BY MOUTH 2 TIMES A DAY, MAX DAILY 100 MG)
     Route: 048
     Dates: start: 20170914
  12. VITAMIN D [Concomitant]
     Active Substance: VITAMIN D NOS
     Dosage: UNK
  13. SYNTHROID [Concomitant]
     Active Substance: LEVOTHYROXINE SODIUM
     Dosage: 88 UG, DAILY (TAKE 1 TABLET)
     Route: 048
  14. MEVACOR [Concomitant]
     Active Substance: LOVASTATIN
     Dosage: 20 MG, DAILY
     Route: 048
  15. PREDNISONE. [Concomitant]
     Active Substance: PREDNISONE
     Dosage: UNK
  16. ALBUTEROL SULFATE. [Concomitant]
     Active Substance: ALBUTEROL SULFATE
     Dosage: 0.5 ML, UNK
     Route: 045
  17. LYRICA [Suspect]
     Active Substance: PREGABALIN
     Dosage: 50 MG, 3X/DAY
  18. VITAMIN B12 [Concomitant]
     Active Substance: CYANOCOBALAMIN
     Dosage: 1000 UG, DAILY (TAKE 1000 MCG BY MOUTH DAILY)
     Route: 048
  19. VENTOLIN HFA [Concomitant]
     Active Substance: ALBUTEROL SULFATE
     Dosage: UNK UNK, AS NEEDED (INHALE 1-2 PUFFS INTO THE LUNG EVERY 6 HOURS AS NEEDED)
     Route: 055
  20. CARDIZEM [Concomitant]
     Active Substance: DILTIAZEM HYDROCHLORIDE
     Dosage: 120 MG, 3X/DAY (TAKE 1 TABLET BY MOUTH 3 TIMES A DAY)
     Route: 048
  21. NOVOLOG [Concomitant]
     Active Substance: INSULIN ASPART
     Indication: DIABETIC NEUROPATHY
     Dosage: 76.65 IU, DAILY (USE VIA INSULIN PUMP AVERAGE DAILY INSULIN IS 76.65 UNITS)
     Route: 042
  22. BETAPACE [Concomitant]
     Active Substance: SOTALOL HYDROCHLORIDE
     Dosage: 120 MG, 2X/DAY (TAKE 1 TABLET BY MOUTH 2 TIMES A DAY)
     Route: 048
  23. LYRICA [Suspect]
     Active Substance: PREGABALIN
     Dosage: 200 MG, DAILY (TAKE 1 TABLET IN THE MORNING, 1 TABLET AT LUNCH AND 2 TABLETS IN THE EVENING)
  24. LYRICA [Suspect]
     Active Substance: PREGABALIN
     Dosage: 50 MG, 2X/DAY (TAKE 1 CAPSULE BY MOUTH 2 TIMES A DAY, MAX DAILY 100 MG)
     Route: 048
     Dates: start: 20170322, end: 2017
  25. LYRICA [Suspect]
     Active Substance: PREGABALIN
     Dosage: 50 MG, 2X/DAY (TAKE 1 CAPSULE BY MOUTH 2 TIMES A DAY, MAX DAILY 100 MG)
     Route: 048
     Dates: start: 20170605, end: 2017
  26. ALBUTEROL SULFATE. [Concomitant]
     Active Substance: ALBUTEROL SULFATE
     Dosage: 3 ML, UNK
     Route: 045
  27. DILACOR XR [Concomitant]
     Active Substance: DILTIAZEM HYDROCHLORIDE
     Dosage: UNK
  28. LASIX [Concomitant]
     Active Substance: FUROSEMIDE
     Dosage: 40 MG, DAILY
     Route: 048
  29. HUMALOG [Concomitant]
     Active Substance: INSULIN LISPRO
     Dosage: UNK (INSULIN PUMP)
     Route: 042
  30. VITAMIN D3 [Concomitant]
     Active Substance: CHOLECALCIFEROL
     Dosage: 1000 IU, DAILY
     Route: 048

REACTIONS (2)
  - Lung disorder [Unknown]
  - Asbestosis [Unknown]
